FAERS Safety Report 13737466 (Version 1)
Quarter: 2017Q3

REPORT INFORMATION
  Report Type: Spontaneous
  Country: CA (occurrence: CA)
  Receive Date: 20170710
  Receipt Date: 20170710
  Transmission Date: 20171127
  Serious: Yes (Hospitalization)
  Sender: FDA-Public Use
  Company Number: CA-FRESENIUS KABI-FK201705856

PATIENT
  Age: 7 Day
  Sex: Male

DRUGS (1)
  1. INDOMETHACIN (MANUFACTURER UNKNOWN) [Suspect]
     Active Substance: INDOMETHACIN
     Indication: PATENT DUCTUS ARTERIOSUS
     Route: 065

REACTIONS (5)
  - Coarctation of the aorta [Recovered/Resolved]
  - Respiratory distress [Recovering/Resolving]
  - Ventricular dysfunction [Recovering/Resolving]
  - Pulse absent [Recovered/Resolved]
  - Blood pressure decreased [Recovered/Resolved]
